FAERS Safety Report 7384872-7 (Version None)
Quarter: 2011Q1

REPORT INFORMATION
  Report Type: 
  Country: None (occurrence: None)
  Receive Date: 20110330
  Receipt Date: 20110327
  Transmission Date: 20110831
  Serious: Yes (Other)
  Sender: FDA-Public Use
  Company Number: US-PFIZER INC-2009208941

PATIENT
  Sex: Male
  Weight: 63.492 kg

DRUGS (21)
  1. CHANTIX [Suspect]
     Dosage: 0.5 MG, 1X/DAY
     Dates: start: 20091201
  2. CHANTIX [Suspect]
     Dosage: 1 MG, 2X/DAY
  3. CHANTIX [Suspect]
     Dosage: 1 MG, 2X/DAY
     Route: 048
  4. LORAZEPAM [Concomitant]
     Dosage: UNK
  5. KLONOPIN [Concomitant]
     Dosage: UNK
  6. OPIUM TINCTURE [Concomitant]
     Dosage: UNK
  7. WINRHO [Concomitant]
     Indication: BONE MARROW DISORDER
  8. CHANTIX [Suspect]
     Indication: SMOKING CESSATION THERAPY
     Dosage: 0.5 MG, 1X/DAY
     Route: 048
     Dates: start: 20090501
  9. CHANTIX [Suspect]
     Dosage: 0.5 MG, 1X/DAY
     Dates: start: 20110318
  10. CHANTIX [Suspect]
     Dosage: 0.5 MG, 1X/DAY
     Route: 048
     Dates: start: 20091015, end: 20090101
  11. CHANTIX [Suspect]
     Dosage: 0.5 MG, UNK
     Route: 048
     Dates: start: 20090101, end: 20091101
  12. CHANTIX [Suspect]
     Dosage: 0.5 MG, 1X/DAY
  13. XANAX [Concomitant]
     Dosage: UNK
  14. TRUVADA [Concomitant]
     Dosage: UNK
  15. CHANTIX [Suspect]
     Dosage: UNK
     Dates: start: 20110228
  16. PRAVASTATIN [Suspect]
     Indication: BLOOD CHOLESTEROL INCREASED
     Dosage: UNK
  17. CHANTIX [Suspect]
     Dosage: 0.5 MG, UNK
     Dates: start: 20090501
  18. DALMANE [Concomitant]
     Dosage: UNK
  19. OXYCODONE [Concomitant]
     Dosage: UNK
  20. REMERON [Concomitant]
     Dosage: UNK
  21. REYATAZ [Concomitant]
     Dosage: UNK

REACTIONS (6)
  - TOBACCO WITHDRAWAL SYMPTOMS [None]
  - SUICIDAL IDEATION [None]
  - ANXIETY [None]
  - ILLUSION [None]
  - CHROMATURIA [None]
  - DEPRESSION [None]
